FAERS Safety Report 20214954 (Version 2)
Quarter: 2022Q1

REPORT INFORMATION
  Report Type: Report from Study
  Country: IT (occurrence: IT)
  Receive Date: 20211222
  Receipt Date: 20220207
  Transmission Date: 20220424
  Serious: Yes (Hospitalization)
  Sender: FDA-Public Use
  Company Number: IT-ABBVIE-21K-083-4203657-00

PATIENT
  Age: 75 Year
  Sex: Male

DRUGS (2)
  1. CARBIDOPA\LEVODOPA [Suspect]
     Active Substance: CARBIDOPA\LEVODOPA
     Indication: Parkinson^s disease
     Dosage: TOTAL DAILY DOSE (MG) : 1.296 PUMP SETTING MD: 7,2 AND 3 CR: 3,6, ED: 0
     Route: 050
     Dates: start: 20211124
  2. CARBIDOPA\LEVODOPA [Suspect]
     Active Substance: CARBIDOPA\LEVODOPA
     Dosage: TOTAL DAILY DOSE: 1392 MG; PUMP SETTING: MD: 8 AND 3, CR: 3,6, ED:2
     Route: 050

REACTIONS (3)
  - Umbilical hernia, obstructive [Recovered/Resolved]
  - Cognitive disorder [Unknown]
  - Hallucination [Recovered/Resolved]

NARRATIVE: CASE EVENT DATE: 20211201
